FAERS Safety Report 6169748-5 (Version None)
Quarter: 2009Q2

REPORT INFORMATION
  Report Type: 
  Country: None (occurrence: None)
  Receive Date: 20090428
  Receipt Date: 20090413
  Transmission Date: 20091009
  Serious: Yes (Other)
  Sender: FDA-Public Use
  Company Number: IT-ROCHE-627426

PATIENT
  Age: 56 Year
  Sex: Female

DRUGS (11)
  1. MYCOPHENOLATE MOFETIL [Suspect]
     Route: 065
  2. PEGASYS [Suspect]
     Indication: HEPATITIS C
     Route: 065
  3. RIBAVIRIN [Suspect]
     Indication: HEPATITIS C
     Route: 065
  4. STEROID NOS [Suspect]
     Route: 065
  5. CYCLOSPORINE [Suspect]
     Dosage: SWITCHED TO TACROLIMUS
     Route: 065
  6. CYCLOSPORINE [Suspect]
     Route: 065
  7. TACROLIMUS [Suspect]
     Route: 065
  8. PREDNISONE TAB [Suspect]
     Indication: DRUG USE FOR UNKNOWN INDICATION
     Route: 065
  9. PREDNISONE TAB [Suspect]
     Dosage: DOSE REDUCED
     Route: 065
  10. BUDESONIDE [Suspect]
     Indication: DRUG USE FOR UNKNOWN INDICATION
     Route: 065
  11. BUDESONIDE [Suspect]
     Route: 065

REACTIONS (13)
  - ABDOMINAL PAIN [None]
  - ANAEMIA [None]
  - ANTINUCLEAR ANTIBODY POSITIVE [None]
  - DISEASE RECURRENCE [None]
  - HEPATIC CIRRHOSIS [None]
  - HEPATIC FUNCTION ABNORMAL [None]
  - HEPATITIS C [None]
  - HYPERGLYCAEMIA [None]
  - LEUKOPENIA [None]
  - MYALGIA [None]
  - SMOOTH MUSCLE ANTIBODY POSITIVE [None]
  - TRANSPLANT REJECTION [None]
  - WEIGHT INCREASED [None]
